FAERS Safety Report 24443609 (Version 2)
Quarter: 2024Q4

REPORT INFORMATION
  Report Type: Report from Study
  Country: US (occurrence: US)
  Receive Date: 20241016
  Receipt Date: 20241017
  Transmission Date: 20250115
  Serious: No
  Sender: ROCHE
  Company Number: US-ROCHE-1335987

PATIENT
  Age: 46 Year
  Sex: Female

DRUGS (14)
  1. RITUXAN [Suspect]
     Active Substance: RITUXIMAB
     Indication: Rheumatoid arthritis
     Route: 065
  2. ACTEMRA [Suspect]
     Active Substance: TOCILIZUMAB
     Indication: Product used for unknown indication
     Route: 065
  3. ARAVA [Suspect]
     Active Substance: LEFLUNOMIDE
     Indication: Rheumatoid arthritis
     Route: 065
  4. ENBREL [Suspect]
     Active Substance: ETANERCEPT
     Indication: Rheumatoid arthritis
     Route: 065
  5. PREDNISONE [Suspect]
     Active Substance: PREDNISONE
     Indication: Rheumatoid arthritis
     Route: 065
  6. METHOTREXATE [Suspect]
     Active Substance: METHOTREXATE
     Indication: Rheumatoid arthritis
     Route: 065
  7. PROZAC [Suspect]
     Active Substance: FLUOXETINE HYDROCHLORIDE
     Indication: Product used for unknown indication
     Route: 065
  8. ZOVIRAX [Concomitant]
     Active Substance: ACYCLOVIR
  9. NORVASC [Concomitant]
     Active Substance: AMLODIPINE BESYLATE
     Route: 048
  10. ECOTRIN [Concomitant]
     Active Substance: ASPIRIN
     Route: 048
  11. LIPITOR [Concomitant]
     Active Substance: ATORVASTATIN CALCIUM
     Route: 048
  12. ADDERALL XR [Concomitant]
     Active Substance: AMPHETAMINE ASPARTATE\AMPHETAMINE SULFATE\DEXTROAMPHETAMINE SACCHARATE\DEXTROAMPHETAMINE SULFATE
  13. SALAGEN [Concomitant]
     Active Substance: PILOCARPINE HYDROCHLORIDE
     Route: 048
  14. CLARITIN [Concomitant]
     Active Substance: LORATADINE
     Route: 048

REACTIONS (22)
  - Treatment failure [Unknown]
  - May-Thurner syndrome [Unknown]
  - Platelet count decreased [Unknown]
  - White blood cell count decreased [Unknown]
  - Arthritis [Unknown]
  - Electrocardiogram QT prolonged [Unknown]
  - Dyspnoea exertional [Unknown]
  - Dry eye [Unknown]
  - Dry mouth [Unknown]
  - Ulcerative keratitis [Unknown]
  - Spinal osteoarthritis [Unknown]
  - Spinal stenosis [Unknown]
  - Swelling [Unknown]
  - Mass [Unknown]
  - Psoriasis [Unknown]
  - Livedo reticularis [Unknown]
  - Nodule [Unknown]
  - Chronic obstructive pulmonary disease [Unknown]
  - Hepatic enzyme increased [Unknown]
  - Sjogren^s syndrome [Unknown]
  - Parotitis [Unknown]
  - Abortion spontaneous [Unknown]

NARRATIVE: CASE EVENT DATE: 20160101
